FAERS Safety Report 17395113 (Version 1)
Quarter: 2020Q1

REPORT INFORMATION
  Report Type: Spontaneous
  Country: US (occurrence: US)
  Receive Date: 20200124
  Receipt Date: 20200124
  Transmission Date: 20200409
  Serious: Yes (Hospitalization)
  Sender: FDA-Public Use
  Company Number: None

PATIENT
  Age: 85 Year
  Sex: Male

DRUGS (1)
  1. TACROLIMUS CAP 0.5MG [Suspect]
     Active Substance: TACROLIMUS
     Indication: RENAL TRANSPLANT
     Dosage: 1MG AM AND 0.5MG PM
     Route: 048
     Dates: start: 201701

REACTIONS (2)
  - Pneumonia [None]
  - Sepsis [None]

NARRATIVE: CASE EVENT DATE: 20200124
